FAERS Safety Report 6443094-4 (Version None)
Quarter: 2009Q4

REPORT INFORMATION
  Report Type: 
  Country: None (occurrence: None)
  Receive Date: 20091117
  Receipt Date: 20091112
  Transmission Date: 20100525
  Serious: Yes (Other)
  Sender: FDA-Public Use
  Company Number: A0816813A

PATIENT

DRUGS (9)
  1. NICODERM [Suspect]
     Route: 062
  2. CHANTIX [Suspect]
     Route: 048
     Dates: start: 20090902
  3. KLONOPIN [Concomitant]
  4. TOPAMAX [Concomitant]
  5. LISINOPRIL [Concomitant]
  6. BUSPAR [Concomitant]
  7. LAMICTAL [Concomitant]
  8. METFORMIN HCL [Concomitant]
  9. GEODON [Concomitant]

REACTIONS (12)
  - AGGRESSION [None]
  - AGITATION [None]
  - ANGER [None]
  - ANXIETY [None]
  - DRUG INEFFECTIVE [None]
  - EMOTIONAL DISTRESS [None]
  - FRUSTRATION [None]
  - IRRITABILITY [None]
  - NAUSEA [None]
  - NIGHTMARE [None]
  - PANIC REACTION [None]
  - STRESS [None]
